FAERS Safety Report 15580819 (Version 1)
Quarter: 2018Q4

REPORT INFORMATION
  Report Type: Report from Study
  Country: US (occurrence: US)
  Receive Date: 20181102
  Receipt Date: 20181102
  Transmission Date: 20190205
  Serious: Yes (Hospitalization)
  Sender: FDA-Public Use
  Company Number: US-GILEAD-2018-0369355

PATIENT
  Age: 75 Year
  Sex: Male

DRUGS (3)
  1. IDELALISIB [Suspect]
     Active Substance: IDELALISIB
     Indication: CHRONIC LYMPHOCYTIC LEUKAEMIA
     Dosage: 150 MG, BID
     Route: 065
     Dates: start: 20170908, end: 201808
  2. IDELALISIB [Suspect]
     Active Substance: IDELALISIB
     Indication: ACUTE LYMPHOCYTIC LEUKAEMIA
     Dosage: 150 MG, BID
     Route: 065
     Dates: start: 201709, end: 201809
  3. VENCLEXTA [Concomitant]
     Active Substance: VENETOCLAX

REACTIONS (6)
  - Swelling [Not Recovered/Not Resolved]
  - White blood cell count decreased [Unknown]
  - Blood glucose increased [Unknown]
  - Off label use [Not Recovered/Not Resolved]
  - Platelet count decreased [Not Recovered/Not Resolved]
  - Haemoglobin decreased [Not Recovered/Not Resolved]
